FAERS Safety Report 7469328-5 (Version None)
Quarter: 2011Q2

REPORT INFORMATION
  Report Type: 
  Country: None (occurrence: None)
  Receive Date: 20110510
  Receipt Date: 20110423
  Transmission Date: 20111010
  Serious: Yes (Other)
  Sender: FDA-Public Use
  Company Number: FR-AMGEN-FRASP2011023503

PATIENT
  Age: 38 Year
  Sex: Female

DRUGS (3)
  1. AMOXICILLIN [Suspect]
     Indication: TONSILLITIS
     Dosage: UNK
  2. ENBREL [Suspect]
     Indication: PSORIATIC ARTHROPATHY
     Dosage: 50 MG, WEEKLY
     Route: 058
     Dates: start: 20080101
  3. ENBREL [Suspect]
     Dosage: 50 MG, QWK
     Route: 058

REACTIONS (5)
  - ERYTHEMA NODOSUM [None]
  - SOFT TISSUE INFLAMMATION [None]
  - SUBCUTANEOUS NODULE [None]
  - TONSILLITIS [None]
  - TOXIC SKIN ERUPTION [None]
